FAERS Safety Report 26004815 (Version 2)
Quarter: 2025Q4

REPORT INFORMATION
  Report Type: Report from Study
  Country: EU (occurrence: EU)
  Receive Date: 20251106
  Receipt Date: 20251110
  Transmission Date: 20260118
  Serious: No
  Sender: JOHNSON AND JOHNSON
  Company Number: EU-JNJFOC-20251035924

PATIENT
  Age: 58 Year
  Sex: Female

DRUGS (19)
  1. TREMFYA [Suspect]
     Active Substance: GUSELKUMAB
     Indication: Psoriasis
     Route: 065
     Dates: start: 20250317
  2. TREMFYA [Suspect]
     Active Substance: GUSELKUMAB
     Indication: Psoriasis
     Route: 065
     Dates: start: 20250404
  3. TREMFYA [Suspect]
     Active Substance: GUSELKUMAB
     Route: 065
     Dates: start: 20250609
  4. TREMFYA [Suspect]
     Active Substance: GUSELKUMAB
     Route: 065
     Dates: start: 20250804
  5. TREMFYA [Suspect]
     Active Substance: GUSELKUMAB
     Route: 065
     Dates: start: 20251003
  6. CANDESARTAN [Concomitant]
     Active Substance: CANDESARTAN
     Indication: Product used for unknown indication
  7. CARVEDILOL [Concomitant]
     Active Substance: CARVEDILOL
     Indication: Product used for unknown indication
  8. PANTOPRAZOLE [Concomitant]
     Active Substance: PANTOPRAZOLE
     Indication: Product used for unknown indication
  9. DOXEPIN [Concomitant]
     Active Substance: DOXEPIN
     Indication: Product used for unknown indication
  10. PAROXETINE [Concomitant]
     Active Substance: PAROXETINE
     Indication: Product used for unknown indication
  11. PROMETHAZINE [Concomitant]
     Active Substance: PROMETHAZINE HYDROCHLORIDE
     Indication: Product used for unknown indication
  12. IBUPROFEN [Concomitant]
     Active Substance: IBUPROFEN
     Indication: Product used for unknown indication
  13. CLOBETASOL PROPIONATE [Concomitant]
     Active Substance: CLOBETASOL PROPIONATE
     Indication: Product used for unknown indication
  14. LORATADINE [Concomitant]
     Active Substance: LORATADINE
     Indication: Product used for unknown indication
  15. MOMETASONE FUROATE [Concomitant]
     Active Substance: MOMETASONE FUROATE
     Indication: Product used for unknown indication
  16. UREA [Concomitant]
     Active Substance: UREA
     Indication: Product used for unknown indication
  17. TRIAMCINOLONE ACETONIDE [Concomitant]
     Active Substance: TRIAMCINOLONE ACETONIDE
     Indication: Product used for unknown indication
  18. POLIDOCANOL [Concomitant]
     Active Substance: POLIDOCANOL
     Indication: Product used for unknown indication
  19. OLIVE OIL [Concomitant]
     Active Substance: OLIVE OIL
     Indication: Product used for unknown indication

REACTIONS (1)
  - Liver function test abnormal [Unknown]

NARRATIVE: CASE EVENT DATE: 20250807
